FAERS Safety Report 5377758-0 (Version None)
Quarter: 2007Q3

REPORT INFORMATION
  Report Type: 
  Country: None (occurrence: None)
  Receive Date: 20070703
  Receipt Date: 20070622
  Transmission Date: 20080115
  Serious: Yes (Other)
  Sender: FDA-Public Use
  Company Number: US-PFIZER INC-2007051639

PATIENT
  Age: 53 Year
  Sex: Male

DRUGS (7)
  1. PREGABALIN [Suspect]
  2. CYMBALTA [Interacting]
  3. CYCLOBENZAPRINE HCL [Interacting]
  4. BUPROPION HYDROCHLORIDE [Concomitant]
  5. OXYCODONE HCL [Concomitant]
     Indication: PAIN
  6. HYDROMORPHONE HCL [Concomitant]
     Indication: PAIN
     Dosage: FREQ:WHEN NEEDED
  7. VANCOMYCIN HCL [Concomitant]

REACTIONS (14)
  - AGITATION [None]
  - CLONUS [None]
  - CONFUSIONAL STATE [None]
  - DRUG INTERACTION [None]
  - HALLUCINATION [None]
  - HYPERHIDROSIS [None]
  - HYPERNATRAEMIA [None]
  - HYPERTHERMIA [None]
  - INFECTION [None]
  - LACTIC ACIDOSIS [None]
  - MYOCLONUS [None]
  - SEROTONIN SYNDROME [None]
  - TACHYCARDIA [None]
  - TREMOR [None]
